FAERS Safety Report 6346676-3 (Version None)
Quarter: 2009Q3

REPORT INFORMATION
  Report Type: 
  Country: None (occurrence: None)
  Receive Date: 20090904
  Receipt Date: 20090824
  Transmission Date: 20100115
  Serious: Yes (Other)
  Sender: FDA-Public Use
  Company Number: 2009AP003452

PATIENT
  Age: 60 Year
  Sex: Female

DRUGS (8)
  1. ALENDRONATE SODIUM [Suspect]
     Dosage: 70 MG;PO
     Route: 048
     Dates: start: 20060201
  2. DICLOFENAC SODIUM [Suspect]
     Dosage: 50 MG;PO;QD
     Route: 048
     Dates: start: 20041201, end: 20081030
  3. ETANERCEPT (ETANERCEPT) [Suspect]
     Indication: RHEUMATOID ARTHRITIS
     Dosage: 50 MG;SC
     Route: 058
     Dates: start: 20070110, end: 20090110
  4. LANSOPRAZOLE [Suspect]
     Dosage: 15 MG;PO;QD
     Route: 048
     Dates: start: 20070101, end: 20081001
  5. LEFLUNOMIDE [Suspect]
     Indication: RHEUMATOID ARTHRITIS
     Dosage: 20 MG;PO
     Route: 048
     Dates: start: 20041201, end: 20090107
  6. ATORVASTATIN CALCIUM [Concomitant]
  7. CALCIUM CARBONATE [Concomitant]
  8. COLECALICIFEROL (COLECALCIFEROL) [Concomitant]

REACTIONS (2)
  - RENAL FAILURE [None]
  - TUBULOINTERSTITIAL NEPHRITIS [None]
